FAERS Safety Report 23231501 (Version 2)
Quarter: 2023Q4

REPORT INFORMATION
  Report Type: Spontaneous
  Country: US (occurrence: US)
  Receive Date: 20231127
  Receipt Date: 20231207
  Transmission Date: 20240109
  Serious: Yes (Other)
  Sender: FDA-Public Use
  Company Number: US-AVADEL CNS PHARMACEUTICALS, LLC-2023AVA00321

PATIENT
  Sex: Female

DRUGS (30)
  1. LUMRYZ [Suspect]
     Active Substance: SODIUM OXYBATE
     Indication: Narcolepsy
     Dosage: 6 G, ONCE NIGHTLY
     Route: 048
     Dates: start: 20230928, end: 2023
  2. LUMRYZ [Suspect]
     Active Substance: SODIUM OXYBATE
     Indication: Narcolepsy
     Dosage: 7.5 G, ONCE NIGHTLY
     Route: 048
     Dates: start: 2023, end: 20231020
  3. LUMRYZ [Suspect]
     Active Substance: SODIUM OXYBATE
     Dosage: 7.5 G, ONCE NIGHTLY
     Route: 048
     Dates: start: 20231031
  4. LUMRYZ [Suspect]
     Active Substance: SODIUM OXYBATE
     Indication: Narcolepsy
     Dosage: 9 G, ONCE NIGHTLY AT BEDTIME
     Route: 048
     Dates: start: 20231021, end: 20231022
  5. ATENOLOL [Concomitant]
     Active Substance: ATENOLOL
     Dosage: 25 MG, 2X/DAY
  6. MIDODRINE HYDROCHLORIDE [Concomitant]
     Active Substance: MIDODRINE HYDROCHLORIDE
     Dosage: 2.5 MG, 1X/DAY
  7. CARBIDOPA\LEVODOPA [Concomitant]
     Active Substance: CARBIDOPA\LEVODOPA
     Dosage: ^10-100^, 2X/DAY
  8. DIAMOX SEQUELS [Concomitant]
     Active Substance: ACETAZOLAMIDE
     Dosage: 125 MG, 1X/DAY
  9. DEXAMETHASONE [Concomitant]
     Active Substance: DEXAMETHASONE
     Dosage: 0.5 MG, 2X/WEEK
  10. HYDROXYCHLOROQUINE [Concomitant]
     Active Substance: HYDROXYCHLOROQUINE
     Dosage: 200 MG, 1X/DAY
  11. SODIUM CHLORIDE [Concomitant]
     Active Substance: SODIUM CHLORIDE
     Dosage: 1 L, 2X/WEEK (3 HOUR INFUSION)
  12. VITAMINS [Concomitant]
     Active Substance: VITAMINS
  13. PERCOCET [Concomitant]
     Active Substance: ACETAMINOPHEN\OXYCODONE HYDROCHLORIDE
     Dosage: ^10/325^, 2X/DAY
  14. BACLOFEN [Concomitant]
     Active Substance: BACLOFEN
     Dosage: 10 MG, 2X/DAY
  15. TIZANIDINE [Concomitant]
     Active Substance: TIZANIDINE
     Dosage: 4 MG, 1X/DAY AT BEDTIME
  16. ALLOPURINOL [Concomitant]
     Active Substance: ALLOPURINOL
     Dosage: 300 MG, 1X/DAY
  17. ATROVENT [Concomitant]
     Active Substance: IPRATROPIUM BROMIDE
     Dosage: 17 ?G, 2X/DAY (MDI [METERED DOSE INHALER])
  18. NP THYROID [Concomitant]
     Active Substance: LEVOTHYROXINE\LIOTHYRONINE
     Dosage: UNK, 1X/DAY
  19. ESTRADIOL [Concomitant]
     Active Substance: ESTRADIOL
     Dosage: 1.75 MG, 1X/DAY
  20. PROGESTERONE [Concomitant]
     Active Substance: PROGESTERONE
     Dosage: 200 MG, 1X/DAY
  21. TESTOSTERONE [Concomitant]
     Active Substance: TESTOSTERONE
     Dosage: 5 MG, 1X/DAY
  22. LORATADINE [Concomitant]
     Active Substance: LORATADINE
     Dosage: 10 MG, 2X/DAY
  23. FAMOTIDINE [Concomitant]
     Active Substance: FAMOTIDINE
     Dosage: 20 MG, 3X/DAY
  24. DIAZEPAM [Concomitant]
     Active Substance: DIAZEPAM
  25. EPINEPHRINE [Concomitant]
     Active Substance: EPINEPHRINE
  26. ALBUTEROL SULFATE [Concomitant]
     Active Substance: ALBUTEROL SULFATE
  27. PROMETHAZINE [Concomitant]
     Active Substance: PROMETHAZINE HYDROCHLORIDE
  28. DICYCLOMINE HYDROCHLORIDE [Concomitant]
     Active Substance: DICYCLOMINE HYDROCHLORIDE
  29. OXYCODONE [Concomitant]
     Active Substance: OXYCODONE
  30. UNSPECIFIED PRN (AS NEEDED) MEDICATIONS [Concomitant]

REACTIONS (26)
  - Loss of consciousness [Recovered/Resolved]
  - Altered state of consciousness [Recovered/Resolved]
  - Apnoea [Recovered/Resolved]
  - Cataplexy [Recovered/Resolved]
  - Urinary incontinence [Recovered/Resolved]
  - Bruxism [Recovered/Resolved]
  - Feeling abnormal [Recovered/Resolved]
  - Head discomfort [Recovered/Resolved]
  - Aphasia [Recovered/Resolved]
  - Amnesia [Recovered/Resolved]
  - Dyskinesia [Recovered/Resolved]
  - Seizure [Recovered/Resolved]
  - Restlessness [Recovered/Resolved]
  - Moaning [Recovered/Resolved]
  - Gait disturbance [Recovered/Resolved]
  - Abnormal behaviour [Recovered/Resolved]
  - Nervous system disorder [Recovered/Resolved]
  - Vertigo [Recovered/Resolved]
  - Nausea [Recovered/Resolved]
  - Vomiting [Recovered/Resolved]
  - Dizziness [Recovered/Resolved]
  - Fall [Recovered/Resolved]
  - Aggression [Recovered/Resolved]
  - Somnolence [Recovered/Resolved]
  - Wrong technique in product usage process [Recovered/Resolved]
  - Product dose omission issue [Recovered/Resolved]

NARRATIVE: CASE EVENT DATE: 20230101
